FAERS Safety Report 13657461 (Version 4)
Quarter: 2022Q1

REPORT INFORMATION
  Report Type: Report from Study
  Country: DE (occurrence: DE)
  Receive Date: 20170615
  Receipt Date: 20220217
  Transmission Date: 20220423
  Serious: Yes (Hospitalization, Other)
  Sender: FDA-Public Use
  Company Number: DE-BRISTOL-MYERS SQUIBB COMPANY-BMS-2017-037667

PATIENT
  Age: 80 Year
  Sex: Male

DRUGS (16)
  1. NIVOLUMAB [Suspect]
     Active Substance: NIVOLUMAB
     Indication: Renal cell carcinoma
     Dosage: 3 MG/KG, Q2WK
     Route: 042
     Dates: start: 20161221
  2. NIVOLUMAB [Suspect]
     Active Substance: NIVOLUMAB
     Dosage: 240 MILLIGRAM
     Route: 042
     Dates: start: 20161221
  3. LEVOTHYROXINE SODIUM [Concomitant]
     Active Substance: LEVOTHYROXINE SODIUM
     Indication: Product used for unknown indication
     Dosage: 100 MICROGRAM
     Route: 065
     Dates: start: 20120509
  4. ALLOPURINOL [Concomitant]
     Active Substance: ALLOPURINOL
     Indication: Product used for unknown indication
     Dosage: 100 MG, UNK
     Route: 065
     Dates: start: 20120509
  5. TORSEMIDE [Concomitant]
     Active Substance: TORSEMIDE
     Indication: Product used for unknown indication
     Dosage: 20 MG, UNK
     Route: 065
     Dates: start: 20120509
  6. RIVAROXABAN [Concomitant]
     Active Substance: RIVAROXABAN
     Indication: Cerebrovascular disorder
     Dosage: 10 MG, UNK
     Route: 065
     Dates: start: 20120509, end: 20160615
  7. AMLODIPINE [Concomitant]
     Active Substance: AMLODIPINE BESYLATE
     Indication: Cerebrovascular disorder
     Dosage: 5 MG, UNK
     Route: 065
     Dates: start: 20160210
  8. ASPIRIN [Concomitant]
     Active Substance: ASPIRIN
     Indication: Cerebrovascular disorder
     Dosage: 100 MG, UNK
     Route: 065
     Dates: start: 20170215
  9. CLOPIDOGREL [Concomitant]
     Active Substance: CLOPIDOGREL BISULFATE
     Indication: Cerebrovascular disorder
     Dosage: 75 MG, UNK
     Route: 065
     Dates: start: 20170215, end: 20170530
  10. MAGNETRANS [MAGNESIUM ASPARTATE] [Concomitant]
     Indication: Prophylaxis
     Dosage: 243 MG, UNK
     Route: 065
  11. ACETAMINOPHEN\CAFFEINE\PROPYPHENAZONE [Concomitant]
     Active Substance: ACETAMINOPHEN\CAFFEINE\PROPYPHENAZONE
     Indication: Pain
     Dosage: UNK UNK, PRN
     Route: 065
     Dates: start: 20170215
  12. SODIUM CHLORIDE [Concomitant]
     Active Substance: SODIUM CHLORIDE
     Indication: Product used for unknown indication
     Dosage: 1 L, UNK
     Route: 065
     Dates: start: 20170104, end: 20170104
  13. KCL [Concomitant]
     Active Substance: POTASSIUM CHLORIDE
     Indication: Product used for unknown indication
     Dosage: 1 L, UNK
     Route: 065
     Dates: start: 20170104, end: 20170104
  14. METAMIZOLE [Concomitant]
     Active Substance: METAMIZOLE
     Indication: Product used for unknown indication
     Dosage: 1 DF, UNK
     Route: 065
     Dates: start: 20170104, end: 20170104
  15. ENOXAPARIN SODIUM [Concomitant]
     Active Substance: ENOXAPARIN SODIUM
     Indication: Cerebrovascular disorder
     Dosage: 0.8 ML, UNK
     Route: 058
     Dates: start: 20161127, end: 20161220
  16. ELIQUIS [Concomitant]
     Active Substance: APIXABAN
     Indication: Cerebrovascular disorder
     Dosage: 2.5 MG, BID
     Route: 065
     Dates: start: 20161220, end: 20170210

REACTIONS (4)
  - Ureteric haemorrhage [Recovered/Resolved]
  - Urinary retention [Recovered/Resolved]
  - Urinary tract disorder [Unknown]
  - Metastatic renal cell carcinoma [Recovered/Resolved]

NARRATIVE: CASE EVENT DATE: 20170404
